FAERS Safety Report 24001649 (Version 1)
Quarter: 2024Q2

REPORT INFORMATION
  Report Type: Spontaneous
  Country: AU (occurrence: AU)
  Receive Date: 20240621
  Receipt Date: 20240621
  Transmission Date: 20240716
  Serious: Yes (Other)
  Sender: FDA-Public Use
  Company Number: AU-002147023-PHHY2019AU087331

PATIENT
  Age: 36 Year
  Sex: Female

DRUGS (8)
  1. BUPIVACAINE HYDROCHLORIDE [Suspect]
     Active Substance: BUPIVACAINE HYDROCHLORIDE\BUPIVACAINE HYDROCHLORIDE ANHYDROUS
     Indication: Anaesthesia
     Route: 065
  2. BUPIVACAINE HYDROCHLORIDE [Suspect]
     Active Substance: BUPIVACAINE HYDROCHLORIDE\BUPIVACAINE HYDROCHLORIDE ANHYDROUS
     Indication: Spinal anaesthesia
  3. CEFAZOLIN [Suspect]
     Active Substance: CEFAZOLIN
     Indication: Antibiotic prophylaxis
     Dosage: 2 G, UNK
     Route: 042
  4. ERGONOVINE MALEATE [Suspect]
     Active Substance: ERGONOVINE MALEATE
     Indication: Product used for unknown indication
     Dosage: 250 IU, UNK
     Route: 042
  5. ERGONOVINE MALEATE [Suspect]
     Active Substance: ERGONOVINE MALEATE
     Indication: Uterine atony
  6. FENTANYL [Suspect]
     Active Substance: FENTANYL\FENTANYL CITRATE
     Indication: Anaesthesia
     Route: 065
  7. SYNTOCINON [Suspect]
     Active Substance: OXYTOCIN
     Indication: Uterine atony
     Dosage: 40 *ENZYME UNIT (U), UNK
     Route: 042
  8. SYNTOCINON [Suspect]
     Active Substance: OXYTOCIN
     Indication: Labour induction
     Dosage: 5 U *ENZYME UNIT, UNK
     Route: 042

REACTIONS (7)
  - Atrial fibrillation [Recovered/Resolved]
  - Tachycardia [Recovered/Resolved]
  - Feeling hot [Unknown]
  - Nausea [Unknown]
  - Discomfort [Unknown]
  - Head discomfort [Unknown]
  - Maternal exposure during pregnancy [Recovered/Resolved]
